FAERS Safety Report 7869326 (Version 4)
Quarter: 2014Q1

REPORT INFORMATION
  Report Type: Report from Study
  Country: CO (occurrence: CO)
  Receive Date: 20110324
  Receipt Date: 20140225
  Transmission Date: 20141002
  Serious: Yes (Hospitalization, Other)
  Sender: FDA-Public Use
  Company Number: PHHO2011CO03884

PATIENT
  Age: 65 Year
  Sex: Female
  Weight: 54 kg

DRUGS (16)
  1. BLINDED ALISKIREN [Suspect]
     Indication: CARDIAC FAILURE
     Dosage: CODE NOT BROKEN
     Route: 048
     Dates: start: 20110202, end: 20110317
  2. BLINDED ENALAPRIL [Suspect]
     Indication: CARDIAC FAILURE
     Dosage: CODE NOT BROKEN
     Route: 048
     Dates: start: 20110202, end: 20110317
  3. BLINDED NO TREATMENT RECEIVED [Suspect]
     Indication: CARDIAC FAILURE
     Dosage: CODE NOT BROKEN
     Route: 048
     Dates: start: 20110202, end: 20110317
  4. BLINDED ALISKIREN [Suspect]
     Dosage: CODE NOT BROKEN
     Route: 048
     Dates: end: 20120215
  5. BLINDED ENALAPRIL [Suspect]
     Dosage: CODE NOT BROKEN
     Route: 048
     Dates: end: 20120215
  6. BLINDED NO TREATMENT RECEIVED [Suspect]
     Dosage: CODE NOT BROKEN
     Route: 048
     Dates: end: 20120215
  7. METOPROLOL [Concomitant]
     Indication: CARDIAC FAILURE
     Dosage: 100 MG, BID
     Route: 048
     Dates: start: 200806
  8. METOPROLOL [Concomitant]
     Dosage: 50 MG, QD
     Route: 048
  9. FURSEMIDA [Concomitant]
     Indication: CARDIAC FAILURE
     Dosage: 40 MG, BID
     Route: 048
     Dates: start: 200806
  10. DIGOXIN [Concomitant]
     Indication: CARDIAC FAILURE
     Dosage: 0.1 MG, QD
     Route: 048
     Dates: start: 20101215
  11. ASA [Concomitant]
     Indication: CORONARY ARTERY DISEASE
     Dosage: 100 MG, QD
     Dates: start: 20100610
  12. LOVASTATIN [Concomitant]
     Indication: DYSLIPIDAEMIA
     Dosage: 40 MG, QD
     Route: 048
     Dates: start: 200806
  13. ESPIRONOLACTONA [Concomitant]
     Indication: CARDIAC FAILURE
     Dosage: 25 MG, QD
     Route: 048
     Dates: start: 200806
  14. ESPIRONOLACTONA [Concomitant]
     Dosage: 25 MG, QD
     Dates: start: 20081110
  15. ESPIRONOLACTONA [Concomitant]
     Dosage: 25 MG, UNK
  16. ENALAPRIL [Concomitant]
     Indication: CARDIAC FAILURE
     Dosage: 10 MG, BID
     Route: 048
     Dates: start: 200806

REACTIONS (2)
  - Thrombocytopenia [Recovered/Resolved]
  - Concomitant disease progression [Recovered/Resolved]
